FAERS Safety Report 14338319 (Version 3)
Quarter: 2018Q1

REPORT INFORMATION
  Report Type: Report from Study
  Country: None (occurrence: US)
  Receive Date: 20171229
  Receipt Date: 20180322
  Transmission Date: 20180509
  Serious: Yes (Death, Hospitalization, Other)
  Sender: FDA-Public Use
  Company Number: US-BAUSCH-BL-2017-035988

PATIENT
  Age: 62 Year
  Sex: Male

DRUGS (4)
  1. XIFAXAN [Suspect]
     Active Substance: RIFAXIMIN
     Indication: HEPATIC CIRRHOSIS
     Route: 048
     Dates: start: 2016, end: 201712
  2. LACTULOSE. [Concomitant]
     Active Substance: LACTULOSE
     Indication: AMMONIA ABNORMAL
     Dates: start: 2015
  3. PROPRANOLOL [Concomitant]
     Active Substance: PROPRANOLOL HYDROCHLORIDE
     Indication: BLOOD PRESSURE INCREASED
  4. PROPRANOLOL [Concomitant]
     Active Substance: PROPRANOLOL HYDROCHLORIDE
     Indication: HEART RATE ABNORMAL
     Dates: start: 2014

REACTIONS (7)
  - Hepatic cirrhosis [Fatal]
  - Epistaxis [Unknown]
  - Ill-defined disorder [Fatal]
  - Hepatic enzyme increased [Fatal]
  - Hepatic lesion [Fatal]
  - Hepatic cancer [Fatal]
  - Blood potassium increased [Fatal]

NARRATIVE: CASE EVENT DATE: 20171208
